FAERS Safety Report 9174592 (Version 1)
Quarter: 2013Q1

REPORT INFORMATION
  Report Type: Spontaneous
  Country: US (occurrence: US)
  Receive Date: 20130320
  Receipt Date: 20130320
  Transmission Date: 20140127
  Serious: No
  Sender: FDA-Public Use
  Company Number: US-MYLANLABS-2013S1000262

PATIENT
  Sex: Female
  Weight: 79.38 kg

DRUGS (3)
  1. ESTRADIOL TRANSDERMAL SYSTEM, USP [Suspect]
     Indication: HORMONE REPLACEMENT THERAPY
     Dosage: QWEEK
     Route: 062
     Dates: start: 2006
  2. XANAX [Concomitant]
     Indication: ANXIETY
     Dosage: TAKEN FOR YEARS
     Route: 048
  3. SYNTHROID [Concomitant]
     Indication: HYPOTHYROIDISM
     Dosage: TAKEN FOR YEARS
     Route: 048

REACTIONS (3)
  - Drug effect decreased [Recovering/Resolving]
  - Asthenia [Recovering/Resolving]
  - Depression [Recovering/Resolving]
